FAERS Safety Report 11287463 (Version 1)
Quarter: 2015Q2

REPORT INFORMATION
  Report Type: Spontaneous
  Country: US (occurrence: None)
  Receive Date: 20150623
  Receipt Date: 20150623
  Transmission Date: 20150821
  Serious: Yes (Other)
  Sender: FDA-Public Use
  Company Number: RB-72264-2015

PATIENT
  Sex: Male

DRUGS (2)
  1. MUCINEX [Suspect]
     Active Substance: GUAIFENESIN
     Indication: NASOPHARYNGITIS
     Dosage: (PATIENT BEGAN USING THE DRUG THE NIGHT BEFORE REPORTING (??-JAN-2015). UNKNOWN)
  2. MUCINEX [Suspect]
     Active Substance: GUAIFENESIN
     Indication: COUGH
     Dosage: (PATIENT BEGAN USING THE DRUG THE NIGHT BEFORE REPORTING (??-JAN-2015). UNKNOWN)

REACTIONS (2)
  - Loss of consciousness [None]
  - Blood pressure decreased [None]

NARRATIVE: CASE EVENT DATE: 201501
